FAERS Safety Report 6026688-X (Version None)
Quarter: 2008Q4

REPORT INFORMATION
  Report Type: 
  Country: None (occurrence: None)
  Receive Date: 20081231
  Receipt Date: 20081219
  Transmission Date: 20090506
  Serious: Yes (Death, Life-Threatening, Hospitalization, Other)
  Sender: FDA-Public Use
  Company Number: 55530

PATIENT
  Age: 53 Year
  Sex: Female

DRUGS (2)
  1. METHOTREXATE [Suspect]
     Indication: ACUTE MYELOID LEUKAEMIA
  2. CYTARABINE [Suspect]

REACTIONS (10)
  - CEREBROVASCULAR ACCIDENT [None]
  - EYELID PTOSIS [None]
  - GUILLAIN-BARRE SYNDROME [None]
  - IIIRD NERVE PARALYSIS [None]
  - MUSCLE ATROPHY [None]
  - NEUROPATHY PERIPHERAL [None]
  - PNEUMONIA [None]
  - QUADRIPLEGIA [None]
  - RESPIRATORY FAILURE [None]
  - SEPSIS [None]
